FAERS Safety Report 6528532-0 (Version None)
Quarter: 2010Q1

REPORT INFORMATION
  Report Type: 
  Country: None (occurrence: None)
  Receive Date: 20100106
  Receipt Date: 20091210
  Transmission Date: 20100710
  Serious: Yes (Other)
  Sender: FDA-Public Use
  Company Number: PHHY2009SE54859

PATIENT
  Sex: Female

DRUGS (8)
  1. EXELON [Suspect]
     Indication: DEMENTIA ALZHEIMER'S TYPE
     Dosage: 4.6MG DAILY
     Route: 062
     Dates: start: 20080101, end: 20090201
  2. EXELON [Suspect]
     Indication: VASCULAR DEMENTIA
     Dosage: 9.5MG DAILY
     Route: 062
  3. LEVOTHYROXINE SODIUM [Concomitant]
  4. ZESTRIL [Concomitant]
  5. CITALOPRAM HYDROBROMIDE [Concomitant]
     Dosage: UNK
  6. LOSEC [Concomitant]
     Dosage: UNK
  7. SOTALOL HCL [Concomitant]
  8. PACEMAKER [Concomitant]
     Dosage: UNK

REACTIONS (8)
  - APPLICATION SITE REACTION [None]
  - APPLICATION SITE VESICLES [None]
  - ATRIOVENTRICULAR BLOCK [None]
  - BRADYCARDIA [None]
  - CARDIAC ARREST [None]
  - ERYTHEMA [None]
  - PRURITUS [None]
  - RASH [None]
